FAERS Safety Report 19977221 (Version 1)
Quarter: 2021Q4

REPORT INFORMATION
  Report Type: Spontaneous
  Country: US (occurrence: US)
  Receive Date: 20211020
  Receipt Date: 20211020
  Transmission Date: 20220304
  Serious: No
  Sender: FDA-Public Use
  Company Number: US-ELI_LILLY_AND_COMPANY-US202109009879

PATIENT
  Sex: Female

DRUGS (4)
  1. TRULICITY [Suspect]
     Active Substance: DULAGLUTIDE
     Indication: Product used for unknown indication
     Dosage: 1.5 MG, WEEKLY (1/W)
     Route: 058
  2. TRULICITY [Suspect]
     Active Substance: DULAGLUTIDE
     Indication: Product used for unknown indication
     Dosage: 3 MG, WEEKLY (1/W)
     Route: 058
  3. GLUCOTROL [Concomitant]
     Active Substance: GLIPIZIDE
     Indication: Blood glucose increased
     Dosage: UNK
  4. METFORMIN [Concomitant]
     Active Substance: METFORMIN HYDROCHLORIDE
     Indication: Blood glucose increased
     Dosage: UNK

REACTIONS (12)
  - Vision blurred [Unknown]
  - Diplopia [Recovering/Resolving]
  - Panic reaction [Recovering/Resolving]
  - Blood glucose increased [Unknown]
  - Hot flush [Recovering/Resolving]
  - Injection site bruising [Unknown]
  - Injection site haemorrhage [Unknown]
  - Injection site urticaria [Unknown]
  - Injection site swelling [Unknown]
  - Injection site erythema [Unknown]
  - Injection site pruritus [Unknown]
  - Incorrect dose administered [Unknown]
